FAERS Safety Report 6788643-1 (Version None)
Quarter: 2010Q2

REPORT INFORMATION
  Report Type: 
  Country: None (occurrence: None)
  Receive Date: 20100623
  Receipt Date: 20080416
  Transmission Date: 20101027
  Serious: No
  Sender: FDA-Public Use
  Company Number: US-PFIZER INC-2008034401

PATIENT
  Sex: Male

DRUGS (1)
  1. SUTENT [Suspect]
     Dates: start: 20070101

REACTIONS (2)
  - INTENTIONAL DRUG MISUSE [None]
  - NO ADVERSE EVENT [None]
